FAERS Safety Report 19582113 (Version 1)
Quarter: 2021Q3

REPORT INFORMATION
  Report Type: Spontaneous
  Country: JP (occurrence: JP)
  Receive Date: 20210720
  Receipt Date: 20210720
  Transmission Date: 20211014
  Serious: Yes (Hospitalization)
  Sender: FDA-Public Use
  Company Number: NVSC2021JP158981

PATIENT
  Age: 29 Year
  Sex: Female
  Weight: 48 kg

DRUGS (5)
  1. LETROZOLE. [Suspect]
     Active Substance: LETROZOLE
     Indication: INVASIVE DUCTAL BREAST CARCINOMA
     Dosage: 5 MG, QD
     Route: 048
  2. LETROZOLE. [Suspect]
     Active Substance: LETROZOLE
     Dosage: 5 MG, QD, RESTARTED
     Route: 048
  3. CABERGOLINE. [Concomitant]
     Active Substance: CABERGOLINE
     Indication: OVARIAN HYPERSTIMULATION SYNDROME
     Dosage: 0.5 MG, QD
     Route: 048
  4. GANIRELIX [Concomitant]
     Active Substance: GANIRELIX
     Indication: PRODUCT USED FOR UNKNOWN INDICATION
     Dosage: 0.25 MG, QD
     Route: 065
  5. NASANYL [Concomitant]
     Active Substance: NAFARELIN ACETATE
     Indication: PRODUCT USED FOR UNKNOWN INDICATION
     Dosage: TWO 300 UG, 1 HOUR APART
     Route: 045

REACTIONS (1)
  - Haemoperitoneum [Recovering/Resolving]
